FAERS Safety Report 16501121 (Version 1)
Quarter: 2019Q2

REPORT INFORMATION
  Report Type: Spontaneous
  Country: US (occurrence: US)
  Receive Date: 20190520
  Receipt Date: 20190520
  Transmission Date: 20190711
  Serious: Yes (Hospitalization)
  Sender: FDA-Public Use
  Company Number: None

PATIENT
  Age: 46 Year
  Sex: Female

DRUGS (4)
  1. JYNARQUE [Suspect]
     Active Substance: TOLVAPTAN
     Dosage: 45MG T AM PO ?15MG T 8 H PO
     Route: 048
     Dates: start: 20190427
  2. RANITIDINE. [Concomitant]
     Active Substance: RANITIDINE
  3. COREG [Concomitant]
     Active Substance: CARVEDILOL
  4. COZAAR [Concomitant]
     Active Substance: LOSARTAN POTASSIUM

REACTIONS (3)
  - Decreased appetite [None]
  - Pollakiuria [None]
  - Thirst [None]

NARRATIVE: CASE EVENT DATE: 20190520
